FAERS Safety Report 7718230-X (Version None)
Quarter: 2011Q3

REPORT INFORMATION
  Report Type: 
  Country: None (occurrence: None)
  Receive Date: 20110830
  Receipt Date: 20110822
  Transmission Date: 20111222
  Serious: Yes (Other)
  Sender: FDA-Public Use
  Company Number: PHEH2011US02206

PATIENT
  Sex: Female
  Weight: 72.109 kg

DRUGS (1)
  1. EXJADE [Suspect]
     Dosage: 500 MG, TID1D
     Route: 048
     Dates: start: 20110308

REACTIONS (1)
  - HYPERBILIRUBINAEMIA [None]
